FAERS Safety Report 21924539 (Version 2)
Quarter: 2023Q1

REPORT INFORMATION
  Report Type: Spontaneous
  Country: DE (occurrence: DE)
  Receive Date: 20230130
  Receipt Date: 20230228
  Transmission Date: 20230418
  Serious: Yes (Other)
  Sender: FDA-Public Use
  Company Number: DE-Hikma Pharmaceuticals USA Inc.-DE-H14001-23-00159

PATIENT
  Age: 24 Week
  Sex: Female

DRUGS (7)
  1. MILRINONE [Suspect]
     Active Substance: MILRINONE
     Indication: Cardiac failure
     Dosage: WEANED OFF
     Route: 042
  2. MILRINONE [Suspect]
     Active Substance: MILRINONE
     Dosage: 0.7 UG/KG/MIN
     Route: 042
  3. NITRIC OXIDE [Suspect]
     Active Substance: NITRIC OXIDE
     Indication: Cardiac failure
     Dosage: 20 PPM
  4. MACITENTAN [Suspect]
     Active Substance: MACITENTAN
     Indication: Cardiac failure
     Route: 065
  5. SILDENAFIL [Suspect]
     Active Substance: SILDENAFIL
     Indication: Cardiac failure
     Route: 042
  6. LEVOSIMENDAN [Suspect]
     Active Substance: LEVOSIMENDAN
     Indication: Cardiac failure
     Dosage: 0.12 MG/KG/MIN
     Route: 065
  7. NOREPINEPHRINE [Suspect]
     Active Substance: NOREPINEPHRINE
     Indication: Cardiac failure
     Dosage: 0.2 MG/KG/MIN
     Route: 065

REACTIONS (2)
  - Pulmonary hypertension [Unknown]
  - Drug ineffective [Unknown]
